FAERS Safety Report 4666243-7 (Version None)
Quarter: 2005Q2

REPORT INFORMATION
  Report Type: 
  Country: None (occurrence: None)
  Receive Date: 20050518
  Receipt Date: 20050518
  Transmission Date: 20051028
  Serious: Yes (Hospitalization)
  Sender: FDA-Public Use
  Company Number: None

PATIENT
  Age: 66 Year
  Sex: Female
  Weight: 65 kg

DRUGS (3)
  1. PACLITAXEL [Suspect]
     Indication: LUNG NEOPLASM MALIGNANT
     Dosage: 87 MG Q 3 WKS X 3 IV
     Route: 042
     Dates: start: 20050411, end: 20050425
  2. CARBOPLATIN [Suspect]
     Indication: LUNG NEOPLASM MALIGNANT
     Dosage: 217 MG Q 3 WK X 3 IV
     Route: 042
     Dates: start: 20050411, end: 20050425
  3. OSI 77% [Suspect]
     Indication: LUNG NEOPLASM MALIGNANT
     Dosage: 150 MG Q D X 28 PO
     Route: 048
     Dates: start: 20050411, end: 20050508

REACTIONS (3)
  - CENTRAL NERVOUS SYSTEM LESION [None]
  - CONVULSION [None]
  - DISEASE PROGRESSION [None]
